FAERS Safety Report 7089947-8 (Version None)
Quarter: 2010Q4

REPORT INFORMATION
  Report Type: 
  Country: None (occurrence: None)
  Receive Date: 20101108
  Receipt Date: 20101026
  Transmission Date: 20110411
  Serious: Yes (Death)
  Sender: FDA-Public Use
  Company Number: US-MYLANLABS-2010S1020090

PATIENT
  Age: 71 Year
  Sex: Female

DRUGS (6)
  1. VERAPAMIL [Suspect]
     Indication: HYPERTENSION
     Route: 065
  2. ATORVASTATIN [Suspect]
     Route: 065
  3. ATORVASTATIN [Suspect]
     Route: 065
  4. LISINOPRIL [Concomitant]
     Route: 065
  5. INSULIN [Concomitant]
     Route: 065
  6. FAMOTIDINE [Concomitant]
     Route: 065

REACTIONS (5)
  - ACUTE HEPATIC FAILURE [None]
  - DISSEMINATED INTRAVASCULAR COAGULATION [None]
  - METABOLIC ACIDOSIS [None]
  - MULTI-ORGAN FAILURE [None]
  - RENAL FAILURE [None]
